FAERS Safety Report 5824192-2 (Version None)
Quarter: 2008Q3

REPORT INFORMATION
  Report Type: 
  Country: None (occurrence: None)
  Receive Date: 20080728
  Receipt Date: 20080722
  Transmission Date: 20090109
  Serious: Yes (Hospitalization)
  Sender: FDA-Public Use
  Company Number: FR-BAYER-200822888GPV

PATIENT
  Age: 86 Year
  Sex: Male

DRUGS (12)
  1. CIPROFLOXACIN HCL [Suspect]
     Indication: BRONCHOPNEUMONIA
     Route: 048
     Dates: start: 20080521, end: 20080527
  2. TAZOCILLINE [Suspect]
     Indication: BRONCHOPNEUMONIA
     Route: 042
     Dates: start: 20080502, end: 20080527
  3. ERY-TAB [Suspect]
     Indication: BRONCHOPNEUMONIA
     Route: 048
     Dates: end: 20080522
  4. DIGITALINE NATIVELLE [Suspect]
     Indication: CARDIAC DISORDER
     Route: 065
     Dates: end: 20080514
  5. AUGMENTIN '125' [Suspect]
     Indication: BRONCHOPNEUMONIA
     Dosage: TOTAL DAILY DOSE: 3 G
     Route: 048
     Dates: start: 20080517, end: 20080521
  6. MOVICOL [Suspect]
     Indication: CONSTIPATION
     Route: 048
     Dates: start: 20080517, end: 20080527
  7. CALCIPARINE [Concomitant]
     Indication: DRUG USE FOR UNKNOWN INDICATION
     Route: 065
     Dates: start: 20080515
  8. CORDARONE [Concomitant]
     Indication: DRUG USE FOR UNKNOWN INDICATION
     Route: 065
  9. CORTANCYL [Concomitant]
     Indication: DRUG USE FOR UNKNOWN INDICATION
     Dosage: TOTAL DAILY DOSE: 3 MG
     Route: 065
  10. COZAAR [Concomitant]
     Indication: DRUG USE FOR UNKNOWN INDICATION
     Route: 065
  11. POTASSIUM CHLORIDE [Concomitant]
     Indication: DRUG USE FOR UNKNOWN INDICATION
     Route: 065
  12. HYDROCORTISONE [Concomitant]
     Indication: DRUG USE FOR UNKNOWN INDICATION
     Route: 065

REACTIONS (2)
  - CLOSTRIDIUM DIFFICILE COLITIS [None]
  - PSEUDOMEMBRANOUS COLITIS [None]
